FAERS Safety Report 9527919 (Version 1)
Quarter: 2013Q3

REPORT INFORMATION
  Report Type: Spontaneous
  Country: US (occurrence: US)
  Receive Date: 20130917
  Receipt Date: 20130917
  Transmission Date: 20140515
  Serious: Yes (Hospitalization)
  Sender: FDA-Public Use
  Company Number: US-SANOFI-AVENTIS-2013SA090128

PATIENT
  Age: 50 Year
  Sex: Male

DRUGS (2)
  1. LANTUS SOLOSTAR [Suspect]
     Indication: DIABETES MELLITUS
     Route: 065
     Dates: start: 20100401
  2. SOLOSTAR [Concomitant]
     Indication: DIABETES MELLITUS
     Dates: start: 20100401

REACTIONS (4)
  - Myocardial infarction [Unknown]
  - Dressler^s syndrome [Unknown]
  - Weight decreased [Unknown]
  - Visual acuity reduced [Unknown]
